FAERS Safety Report 15154628 (Version 1)
Quarter: 2018Q3

REPORT INFORMATION
  Report Type: Spontaneous
  Country: FR (occurrence: FR)
  Receive Date: 20180717
  Receipt Date: 20180717
  Transmission Date: 20181010
  Serious: Yes (Hospitalization)
  Sender: FDA-Public Use
  Company Number: FR-ELI_LILLY_AND_COMPANY-FR201807002405

PATIENT
  Sex: Female

DRUGS (4)
  1. ABASAGLAR [Suspect]
     Active Substance: INSULIN GLARGINE
     Indication: PRODUCT USED FOR UNKNOWN INDICATION
     Dosage: 3 IU, EACH EVENING
     Route: 065
     Dates: start: 20180629, end: 20180704
  2. NOVONORM [Concomitant]
     Active Substance: REPAGLINIDE
     Indication: PRODUCT USED FOR UNKNOWN INDICATION
     Dosage: UNK, BID (NOON AND EVENING)
  3. ABASAGLAR [Suspect]
     Active Substance: INSULIN GLARGINE
     Indication: PRODUCT USED FOR UNKNOWN INDICATION
     Dosage: 3 IU, EACH EVENING
     Route: 065
     Dates: end: 20180628
  4. NOVORAPID [Concomitant]
     Active Substance: INSULIN ASPART
     Indication: PRODUCT USED FOR UNKNOWN INDICATION
     Dosage: UNK, TID (PLUS CATCHING UP IF NEEDED)

REACTIONS (3)
  - Cognitive disorder [Unknown]
  - Blood glucose increased [Unknown]
  - Fall [Unknown]
